FAERS Safety Report 20518894 (Version 1)
Quarter: 2022Q1

REPORT INFORMATION
  Report Type: Spontaneous
  Country: US (occurrence: US)
  Receive Date: 20220225
  Receipt Date: 20220225
  Transmission Date: 20220423
  Serious: No
  Sender: FDA-Public Use
  Company Number: US-INCYTE CORPORATION-2022IN001672

PATIENT

DRUGS (2)
  1. JAKAFI [Suspect]
     Active Substance: RUXOLITINIB
     Indication: Breast cancer
     Dosage: 15 MILLIGRAM, BID
     Route: 048
     Dates: start: 202110
  2. JAKAFI [Suspect]
     Active Substance: RUXOLITINIB
     Dosage: 15 MILLIGRAM, BID
     Route: 048
     Dates: start: 202201

REACTIONS (5)
  - Arthralgia [Unknown]
  - Off label use [Unknown]
  - Fatigue [Unknown]
  - Weight increased [Unknown]
  - Dyspnoea [Unknown]

NARRATIVE: CASE EVENT DATE: 20211001
